FAERS Safety Report 8876335 (Version 3)
Quarter: 2013Q4

REPORT INFORMATION
  Report Type: Spontaneous
  Country: US (occurrence: US)
  Receive Date: 20121031
  Receipt Date: 20131003
  Transmission Date: 20140711
  Serious: No
  Sender: FDA-Public Use
  Company Number: US-009507513-1210USA008300

PATIENT
  Age: 66 Year
  Sex: Male

DRUGS (3)
  1. MAXALT MLT [Suspect]
     Indication: MIGRAINE
     Dosage: TWICE A MONTH, PRN
     Route: 048
     Dates: start: 2005
  2. CRESTORIMITREX [Concomitant]
  3. IMITREX (SUMATRIPTAN) [Concomitant]

REACTIONS (3)
  - Vasoconstriction [Recovered/Resolved]
  - Angina pectoris [Recovered/Resolved]
  - Chest pain [Recovered/Resolved]
